FAERS Safety Report 5881853-7 (Version None)
Quarter: 2008Q3

REPORT INFORMATION
  Report Type: 
  Country: None (occurrence: None)
  Receive Date: 20080912
  Receipt Date: 20080714
  Transmission Date: 20090109
  Serious: No
  Sender: FDA-Public Use
  Company Number: US-ABBOTT-08P-163-0463022-00

PATIENT
  Weight: 74.002 kg

DRUGS (13)
  1. HUMIRA [Suspect]
     Indication: RHEUMATOID ARTHRITIS
     Dates: start: 20080201
  2. METHOTREXATE [Concomitant]
     Indication: RHEUMATOID ARTHRITIS
     Dosage: 2.5MG X'S 4 PILLS EVERY WEEK
     Route: 048
  3. PREDNISONE TAB [Concomitant]
     Indication: INFLAMMATION
     Route: 048
  4. FOLIC ACID [Concomitant]
     Indication: VITAMIN SUPPLEMENTATION
     Route: 048
  5. CEFIXIME CHEWABLE [Concomitant]
     Indication: MUSCLE RELAXANT THERAPY
     Route: 048
  6. INSULIN [Concomitant]
     Indication: DIABETES MELLITUS
     Dosage: 48 UNITS BID
     Route: 058
  7. INSULIN GLARGINE [Concomitant]
     Indication: DIABETES MELLITUS
     Route: 058
  8. ATENOLOL [Concomitant]
     Indication: BLOOD PRESSURE
     Route: 048
  9. ZOLPIDEM TARTRATE [Concomitant]
     Indication: INSOMNIA
     Dosage: AT BED TIME
     Route: 048
  10. ALPRAZOLAM [Concomitant]
     Indication: ANXIETY
     Route: 048
  11. PRINZIDE [Concomitant]
     Indication: BLOOD PRESSURE
     Dosage: 20/12.5 BID
     Route: 048
  12. TYLOX [Concomitant]
     Indication: PAIN
     Dosage: 1-3 TABLETS
     Route: 048
  13. CHOLESTEROL [Concomitant]
     Indication: BLOOD CHOLESTEROL
     Route: 048

REACTIONS (2)
  - ACCIDENTAL EXPOSURE [None]
  - INJECTION SITE HAEMORRHAGE [None]
